FAERS Safety Report 10014799 (Version 1)
Quarter: 2014Q1

REPORT INFORMATION
  Report Type: Spontaneous
  Country: US (occurrence: US)
  Receive Date: 20140317
  Receipt Date: 20140317
  Transmission Date: 20141002
  Serious: No
  Sender: FDA-Public Use
  Company Number: US-SHIRE-US201400458

PATIENT
  Sex: 0

DRUGS (2)
  1. VYVANSE [Suspect]
     Indication: ATTENTION DEFICIT/HYPERACTIVITY DISORDER
     Dosage: 40 MG, 1X/DAY:QD
     Route: 048
     Dates: start: 201303
  2. ELAVIL                             /00002202/ [Concomitant]
     Indication: PRODUCT USED FOR UNKNOWN INDICATION
     Dosage: UNK UNK, UNKNOWN
     Route: 065
     Dates: start: 20140210

REACTIONS (7)
  - Erythema [Not Recovered/Not Resolved]
  - Disturbance in social behaviour [Unknown]
  - Educational problem [Unknown]
  - Negativism [Not Recovered/Not Resolved]
  - Psychomotor hyperactivity [Not Recovered/Not Resolved]
  - Insomnia [Recovered/Resolved]
  - Drug effect decreased [Not Recovered/Not Resolved]
